FAERS Safety Report 14304552 (Version 1)
Quarter: 2017Q4

REPORT INFORMATION
  Report Type: Spontaneous
  Country: JP (occurrence: JP)
  Receive Date: 20171219
  Receipt Date: 20171219
  Transmission Date: 20180321
  Serious: Yes (Other)
  Sender: FDA-Public Use
  Company Number: JP-OTSUKA-JP-2013-11063

PATIENT
  Age: 64 Year
  Sex: Male

DRUGS (3)
  1. ABILIFY [Suspect]
     Active Substance: ARIPIPRAZOLE
     Indication: BIPOLAR DISORDER
     Dosage: 24 MG, QD
     Route: 048
     Dates: start: 20120721
  2. LIMAS [Suspect]
     Active Substance: LITHIUM CARBONATE
     Dosage: 400 MG, QD
     Route: 048
     Dates: start: 20120709
  3. DEPAKENE [Suspect]
     Active Substance: VALPROIC ACID
     Dosage: 600 MG, QD
     Route: 048
     Dates: start: 20120709

REACTIONS (1)
  - Waldenstrom^s macroglobulinaemia [Not Recovered/Not Resolved]

NARRATIVE: CASE EVENT DATE: 201211
